FAERS Safety Report 17325212 (Version 1)
Quarter: 2020Q1

REPORT INFORMATION
  Report Type: Report from Study
  Country: DE (occurrence: DE)
  Receive Date: 20200127
  Receipt Date: 20200127
  Transmission Date: 20200409
  Serious: Yes (Death, Hospitalization)
  Sender: FDA-Public Use
  Company Number: DE-PFIZER INC-2019315493

PATIENT
  Age: 38 Year
  Sex: Female
  Weight: 100 kg

DRUGS (4)
  1. DOCETAXEL. [Suspect]
     Active Substance: DOCETAXEL
     Dosage: 150 MG, CYCLIC
     Route: 042
     Dates: start: 20190613
  2. RED BLOOD CELLS [Concomitant]
     Active Substance: HUMAN RED BLOOD CELL
     Dosage: 550 ML, AS NEEDED
     Route: 042
     Dates: start: 20190524, end: 20190524
  3. DOCETAXEL. [Suspect]
     Active Substance: DOCETAXEL
     Indication: BREAST CANCER
     Dosage: 200 MG, CYCLIC
     Route: 042
     Dates: start: 20181203
  4. TRASTUZUMAB. [Suspect]
     Active Substance: TRASTUZUMAB
     Indication: BREAST CANCER
     Dosage: 860 MG, CYCLIC
     Route: 042
     Dates: start: 20181203, end: 20190613

REACTIONS (1)
  - Asthma [Fatal]

NARRATIVE: CASE EVENT DATE: 20190629
